FAERS Safety Report 18432841 (Version 3)
Quarter: 2020Q4

REPORT INFORMATION
  Report Type: Spontaneous
  Country: US (occurrence: US)
  Receive Date: 20201027
  Receipt Date: 20201030
  Transmission Date: 20210114
  Serious: Yes (Other)
  Sender: FDA-Public Use
  Company Number: US-VELOXIS PHARMACEUTICALS-2020VELUS-000902

PATIENT
  Age: 71 Year
  Sex: Male

DRUGS (5)
  1. MYCOPHENOLATE [Suspect]
     Active Substance: MYCOPHENOLIC ACID
     Indication: PROPHYLAXIS AGAINST TRANSPLANT REJECTION
  2. ACYCLOVIR [ACICLOVIR] [Suspect]
     Active Substance: ACYCLOVIR
     Indication: INFECTION PROPHYLAXIS
  3. ENVARSUS XR [Suspect]
     Active Substance: TACROLIMUS
     Indication: PROPHYLAXIS AGAINST TRANSPLANT REJECTION
  4. SULFAMETHOXAZOLE;TRIMETHOPRIM [Suspect]
     Active Substance: SULFAMETHOXAZOLE\TRIMETHOPRIM
     Indication: INFECTION PROPHYLAXIS
  5. PREDNISONE. [Suspect]
     Active Substance: PREDNISONE
     Indication: PROPHYLAXIS AGAINST TRANSPLANT REJECTION

REACTIONS (14)
  - Anaemia [Recovered/Resolved]
  - Drug level increased [Unknown]
  - Hypotension [Recovered/Resolved]
  - Hypothermia [Recovered/Resolved]
  - Dysphagia [Unknown]
  - Hyperglycaemia [Unknown]
  - Obstruction gastric [Unknown]
  - Melaena [Not Recovered/Not Resolved]
  - Hypoalbuminaemia [Unknown]
  - Necrotising oesophagitis [Recovering/Resolving]
  - Sepsis [Unknown]
  - Oesophageal stenosis [Unknown]
  - Duodenal ulcer [Recovering/Resolving]
  - Leukocytosis [Recovering/Resolving]
